FAERS Safety Report 8994669 (Version 1)
Quarter: 2012Q4

REPORT INFORMATION
  Report Type: Spontaneous
  Country: US (occurrence: None)
  Receive Date: 20121228
  Receipt Date: 20121228
  Transmission Date: 20130627
  Serious: Yes (Hospitalization)
  Sender: FDA-Public Use
  Company Number: None

PATIENT
  Age: 82 Year
  Sex: Female

DRUGS (3)
  1. OSELTAMIVIR PHOSPHATE [Suspect]
     Indication: INFLUENZA A VIRUS INFECTION
     Route: 048
     Dates: start: 20121221, end: 20121225
  2. LEVOFLOXACIN [Concomitant]
  3. GUAIFENESSIN SA [Concomitant]

REACTIONS (3)
  - Verbal abuse [None]
  - Tearfulness [None]
  - Abnormal behaviour [None]
